FAERS Safety Report 8110127-9 (Version None)
Quarter: 2012Q1

REPORT INFORMATION
  Report Type: 
  Country: None (occurrence: None)
  Receive Date: 20120202
  Receipt Date: 20120125
  Transmission Date: 20120608
  Serious: No
  Sender: FDA-Public Use
  Company Number: US-AMGEN-USASP2012004947

PATIENT
  Age: 52 Year
  Sex: Female

DRUGS (1)
  1. ENBREL [Suspect]
     Indication: RHEUMATOID ARTHRITIS
     Dosage: 25 MG, 2 TIMES/WK
     Dates: start: 19990201, end: 20090101

REACTIONS (4)
  - INJECTION SITE PAIN [None]
  - RHEUMATOID ARTHRITIS [None]
  - SPIDER VEIN [None]
  - INJECTION SITE HAEMATOMA [None]
